FAERS Safety Report 8029900-0 (Version None)
Quarter: 2012Q1

REPORT INFORMATION
  Report Type: 
  Country: None (occurrence: None)
  Receive Date: 20120109
  Receipt Date: 20111229
  Transmission Date: 20120608
  Serious: Yes (Hospitalization)
  Sender: FDA-Public Use
  Company Number: US-ELI_LILLY_AND_COMPANY-US201201000994

PATIENT
  Sex: Female

DRUGS (6)
  1. ZOCOR [Concomitant]
  2. TRAZODONE HCL [Concomitant]
  3. VITAMIN TAB [Concomitant]
  4. LITHIUM [Concomitant]
  5. FORTEO [Suspect]
     Indication: OSTEOPOROSIS
     Dosage: 20 UG, QD
     Route: 065
     Dates: start: 20100901
  6. PAXIL [Concomitant]

REACTIONS (3)
  - UPPER LIMB FRACTURE [None]
  - WRIST FRACTURE [None]
  - HAND FRACTURE [None]
